FAERS Safety Report 7998218-4 (Version None)
Quarter: 2011Q4

REPORT INFORMATION
  Report Type: 
  Country: None (occurrence: None)
  Receive Date: 20111221
  Receipt Date: 20110418
  Transmission Date: 20120403
  Serious: No
  Sender: FDA-Public Use
  Company Number: US-GLAXOSMITHKLINE-A0923367A

PATIENT
  Age: 60 Year
  Sex: Male

DRUGS (2)
  1. UNSPECIFIED MEDICATIONS [Concomitant]
  2. LOVAZA [Suspect]
     Indication: BLOOD TRIGLYCERIDES INCREASED
     Route: 048

REACTIONS (4)
  - PRODUCT QUALITY ISSUE [None]
  - DIARRHOEA [None]
  - MALAISE [None]
  - ABDOMINAL PAIN UPPER [None]
